FAERS Safety Report 15740401 (Version 1)
Quarter: 2018Q4

REPORT INFORMATION
  Report Type: Report from Study
  Country: US (occurrence: US)
  Receive Date: 20181219
  Receipt Date: 20181219
  Transmission Date: 20190205
  Serious: Yes (Hospitalization)
  Sender: FDA-Public Use
  Company Number: US-TAIHO ONCOLOGY  INC-EU-2018-02388

PATIENT
  Sex: Male
  Weight: 63.11 kg

DRUGS (1)
  1. LONSURF [Suspect]
     Active Substance: TIPIRACIL HYDROCHLORIDE\TRIFLURIDINE
     Indication: COLON CANCER
     Dosage: DISCREPANT INFORMATION: CYCLE 3 STARTED ON 09/NOV/2018, CYCLE 4 STARTED ON 17/AUG/2018
     Route: 048
     Dates: start: 2018

REACTIONS (6)
  - Haemoglobin decreased [Unknown]
  - Decreased appetite [Unknown]
  - Hospitalisation [Not Recovered/Not Resolved]
  - Malaise [Unknown]
  - Haematocrit decreased [Unknown]
  - Fatigue [Unknown]

NARRATIVE: CASE EVENT DATE: 2018
